FAERS Safety Report 20418340 (Version 1)
Quarter: 2022Q1

REPORT INFORMATION
  Report Type: Spontaneous
  Country: JP (occurrence: JP)
  Receive Date: 20220202
  Receipt Date: 20220202
  Transmission Date: 20220424
  Serious: Yes (Death, Other)
  Sender: FDA-Public Use
  Company Number: JP-JAZZ-2022-JP-001692

PATIENT
  Age: 55 Year
  Sex: Male
  Weight: 71.6 kg

DRUGS (1)
  1. DEFITELIO [Suspect]
     Active Substance: DEFIBROTIDE SODIUM
     Indication: Venoocclusive liver disease
     Dosage: 25 MILLIGRAM/KILOGRAM, QD
     Route: 048
     Dates: start: 20210806, end: 20210807

REACTIONS (3)
  - Venoocclusive liver disease [Fatal]
  - Graft versus host disease [Fatal]
  - Thrombotic microangiopathy [Fatal]

NARRATIVE: CASE EVENT DATE: 20210801
